FAERS Safety Report 19356631 (Version 1)
Quarter: 2021Q2

REPORT INFORMATION
  Report Type: Spontaneous
  Country: US (occurrence: US)
  Receive Date: 20210601
  Receipt Date: 20210601
  Transmission Date: 20210717
  Serious: No
  Sender: FDA-Public Use
  Company Number: US-TARO-2021TAR00253

PATIENT
  Sex: Female

DRUGS (2)
  1. IMIQUIMOD CREAM 5% [Suspect]
     Active Substance: IMIQUIMOD
     Indication: BASAL CELL CARCINOMA
     Dosage: UNK
     Route: 065
  2. IMIQUIMOD CREAM 5% [Suspect]
     Active Substance: IMIQUIMOD
     Indication: ACTINIC KERATOSIS

REACTIONS (1)
  - Erythema [Recovering/Resolving]
